FAERS Safety Report 10137676 (Version 1)
Quarter: 2014Q2

REPORT INFORMATION
  Report Type: Spontaneous
  Country: US (occurrence: None)
  Receive Date: 20140428
  Receipt Date: 20140428
  Transmission Date: 20141212
  Serious: Yes (Other)
  Sender: FDA-Public Use
  Company Number: None

PATIENT
  Age: 40 Year
  Sex: Female

DRUGS (1)
  1. REQUIP [Suspect]
     Indication: RESTLESS LEGS SYNDROME
     Dosage: 1 PILL 1-2 HOURS BEFORE BED, ONCE DAILY, TAKEN BY MOUTH
     Route: 048
     Dates: start: 20140418, end: 20140424

REACTIONS (11)
  - Cognitive disorder [None]
  - Memory impairment [None]
  - Aphasia [None]
  - Tinnitus [None]
  - Dizziness [None]
  - Photosensitivity reaction [None]
  - Sneezing [None]
  - Cough [None]
  - Sleep disorder [None]
  - Haemorrhage [None]
  - Hyperaesthesia [None]
